FAERS Safety Report 4448118-1 (Version None)
Quarter: 2004Q3

REPORT INFORMATION
  Report Type: 
  Country: None (occurrence: None)
  Receive Date: 20040812
  Receipt Date: 20040518
  Transmission Date: 20050211
  Serious: No
  Sender: FDA-Public Use
  Company Number: USA040567831

PATIENT
  Age: 78 Year
  Sex: 0
  Weight: 95 kg

DRUGS (3)
  1. CIALIS [Suspect]
     Dosage: 20 MG DAY
     Dates: start: 20040514
  2. CELEBREX [Concomitant]
  3. UNSPECIFIED PAIN MEDICATION [Concomitant]

REACTIONS (2)
  - BACK PAIN [None]
  - PAIN IN EXTREMITY [None]
